FAERS Safety Report 20021926 (Version 2)
Quarter: 2021Q4

REPORT INFORMATION
  Report Type: Other
  Country: GB (occurrence: None)
  Receive Date: 20211102
  Receipt Date: 20211128
  Transmission Date: 20220303
  Serious: Yes (Hospitalization)
  Sender: FDA-Public Use
  Company Number: GB-ROCHE-2945359

PATIENT
  Sex: Male

DRUGS (1)
  1. ESBRIET [Suspect]
     Active Substance: PIRFENIDONE
     Indication: Idiopathic pulmonary fibrosis
     Dosage: 3 TABLETS TO BE TAKEN 3 TIMES A DAY
     Route: 048

REACTIONS (3)
  - Fall [Unknown]
  - Hip fracture [Unknown]
  - Malaise [Unknown]
